FAERS Safety Report 6157504-3 (Version None)
Quarter: 2009Q2

REPORT INFORMATION
  Report Type: 
  Country: None (occurrence: None)
  Receive Date: 20090416
  Receipt Date: 20090416
  Transmission Date: 20091009
  Serious: Yes (Hospitalization)
  Sender: FDA-Public Use
  Company Number: DE-GENENTECH-276330

PATIENT
  Sex: Male

DRUGS (2)
  1. RAPTIVA [Suspect]
     Indication: PSORIASIS
     Dosage: 0.6 ML, 1/WEEK
     Route: 058
     Dates: start: 20060807, end: 20080203
  2. TETANOL [Concomitant]
     Indication: TETANUS IMMUNISATION
     Dosage: 0.5 ML, UNK
     Route: 030
     Dates: start: 20080131

REACTIONS (3)
  - HEPATITIS [None]
  - LIVER DISORDER [None]
  - LIVER FUNCTION TEST ABNORMAL [None]
